FAERS Safety Report 5020457-5 (Version None)
Quarter: 2006Q2

REPORT INFORMATION
  Report Type: 
  Country: None (occurrence: None)
  Receive Date: 20060607
  Receipt Date: 20060530
  Transmission Date: 20061013
  Serious: Yes (Other)
  Sender: FDA-Public Use
  Company Number: US-SANOFI-SYNTHELABO-A03200603419

PATIENT
  Sex: Female
  Weight: 68.9 kg

DRUGS (6)
  1. LIPITOR [Concomitant]
     Dosage: UNK
     Route: 048
  2. AMBIEN [Suspect]
     Indication: INSOMNIA
     Route: 048
     Dates: start: 20060420, end: 20060529
  3. CYCLOBENZAPRINE HCL [Concomitant]
     Dosage: UNK
     Route: 048
  4. FOSAMAX [Concomitant]
     Dosage: UNK
     Route: 048
  5. MULTI-VITAMIN [Concomitant]
     Dosage: UNK
     Route: 048
  6. EFFEXOR [Concomitant]
     Dosage: UNK
     Route: 048

REACTIONS (7)
  - ABNORMAL BEHAVIOUR [None]
  - AMNESIA [None]
  - DEMENTIA [None]
  - DEMENTIA ALZHEIMER'S TYPE [None]
  - ROAD TRAFFIC ACCIDENT [None]
  - SLEEP TALKING [None]
  - SLEEP WALKING [None]
